FAERS Safety Report 7394490-2 (Version None)
Quarter: 2011Q2

REPORT INFORMATION
  Report Type: 
  Country: None (occurrence: None)
  Receive Date: 20110405
  Receipt Date: 20110325
  Transmission Date: 20111010
  Serious: Yes (Hospitalization, Other)
  Sender: FDA-Public Use
  Company Number: PHHY2011EC25256

PATIENT
  Sex: Female

DRUGS (1)
  1. TEGRETOL-XR [Suspect]
     Indication: EPILEPSY
     Dosage: 1400 MG, DAILY
     Route: 048
     Dates: start: 19900101, end: 20110314

REACTIONS (2)
  - BURNS THIRD DEGREE [None]
  - GRAND MAL CONVULSION [None]
